FAERS Safety Report 18196733 (Version 1)
Quarter: 2020Q3

REPORT INFORMATION
  Report Type: Spontaneous
  Country: FR (occurrence: FR)
  Receive Date: 20200826
  Receipt Date: 20200826
  Transmission Date: 20201103
  Serious: Yes (Life-Threatening, Other)
  Sender: FDA-Public Use
  Company Number: FR-AMGEN-FRASP2020137032

PATIENT
  Age: 87 Year
  Sex: Female
  Weight: 36 kg

DRUGS (1)
  1. KYPROLIS [Suspect]
     Active Substance: CARFILZOMIB
     Indication: PLASMA CELL MYELOMA
     Dosage: 390 MILLIGRAM, CYCLICAL
     Route: 041
     Dates: start: 20200526, end: 20200526

REACTIONS (3)
  - Electrocardiogram repolarisation abnormality [Recovering/Resolving]
  - Tachycardia [Recovered/Resolved]
  - Cardiac failure [Recovering/Resolving]

NARRATIVE: CASE EVENT DATE: 20200527
